FAERS Safety Report 4582076-4 (Version None)
Quarter: 2005Q1

REPORT INFORMATION
  Report Type: 
  Country: None (occurrence: None)
  Receive Date: 20050119
  Receipt Date: 20040622
  Transmission Date: 20050727
  Serious: Yes (Disabling)
  Sender: FDA-Public Use
  Company Number: A03200401994

PATIENT
  Age: 81 Year
  Sex: Female
  Weight: 48.5349 kg

DRUGS (8)
  1. PLAVIX [Suspect]
     Indication: CORONARY ARTERY OCCLUSION
     Dosage: 75 MG QD - ORAL
     Route: 048
     Dates: start: 20040617, end: 20040618
  2. ACETYLSALICYLIC ACID SRT [Concomitant]
  3. DIGOXIN [Concomitant]
  4. NITROGLYCERIN [Concomitant]
  5. EZETIMIBE [Concomitant]
  6. LEVOTHYROXINE SODIUM [Concomitant]
  7. RALOXIFENE HYDROCHLROIDE [Concomitant]
  8. NICOTINIC ACID [Concomitant]

REACTIONS (1)
  - HEADACHE [None]
